FAERS Safety Report 7654303-8 (Version None)
Quarter: 2011Q3

REPORT INFORMATION
  Report Type: 
  Country: None (occurrence: None)
  Receive Date: 20110803
  Receipt Date: 20110726
  Transmission Date: 20111222
  Serious: Yes (Other)
  Sender: FDA-Public Use
  Company Number: PHHY2011US29056

PATIENT
  Sex: Female
  Weight: 62.585 kg

DRUGS (6)
  1. CHONDROITIN SULFATE [Concomitant]
  2. VICODIN [Concomitant]
  3. CALCIMATE [Concomitant]
  4. FEMARA [Concomitant]
     Dosage: 2.5 MG, DAILY
  5. LOPRESSOR [Concomitant]
     Dosage: 50 MG, UNK
  6. ZOMETA [Suspect]
     Indication: BREAST CANCER
     Route: 042
     Dates: start: 20100830, end: 20110405

REACTIONS (5)
  - BONE PAIN [None]
  - GAIT DISTURBANCE [None]
  - CHEST PAIN [None]
  - CONSTIPATION [None]
  - OSTEONECROSIS [None]
